FAERS Safety Report 4704621-8 (Version None)
Quarter: 2005Q2

REPORT INFORMATION
  Report Type: 
  Country: None (occurrence: None)
  Receive Date: 20050630
  Receipt Date: 20050620
  Transmission Date: 20051028
  Serious: Yes (Death, Life-Threatening, Disabling)
  Sender: FDA-Public Use
  Company Number: US-MERCK-0506USA02921

PATIENT
  Age: 26 Year
  Sex: Female

DRUGS (2)
  1. MAXALT [Suspect]
     Indication: MIGRAINE
     Route: 048
  2. HORMONAL CONTRACEPTIVES (UNSPECIFIED) [Concomitant]
     Route: 065

REACTIONS (2)
  - ADVERSE EVENT [None]
  - DEATH [None]
